FAERS Safety Report 6409385-8 (Version None)
Quarter: 2009Q4

REPORT INFORMATION
  Report Type: 
  Country: None (occurrence: None)
  Receive Date: 20091013
  Receipt Date: 20091013
  Transmission Date: 20100525
  Serious: Yes (Hospitalization)
  Sender: FDA-Public Use
  Company Number: None

PATIENT
  Age: 50 Year
  Sex: Female

DRUGS (2)
  1. CISPLATIN [Suspect]
     Indication: GASTRIC CANCER
     Dosage: CYC IV 9 WEEKS 2 DAYS
     Route: 042
     Dates: start: 20090722, end: 20090924
  2. 5-FLOUROURACIL SOLUTION FOR INFUSION [Suspect]
     Indication: GASTRIC CANCER
     Dosage: CYC IV 9 WEEKS 2 DAYS
     Route: 042
     Dates: start: 20090722, end: 20090924

REACTIONS (2)
  - HEART RATE INCREASED [None]
  - PLEURAL EFFUSION [None]
